FAERS Safety Report 21972185 (Version 2)
Quarter: 2023Q1

REPORT INFORMATION
  Report Type: Other
  Country: IN (occurrence: None)
  Receive Date: 20230209
  Receipt Date: 20230325
  Transmission Date: 20230417
  Serious: Yes (Other)
  Sender: FDA-Public Use
  Company Number: IN-ROCHE-3252228

PATIENT
  Age: 51 Year
  Sex: Female

DRUGS (1)
  1. TECENTRIQ [Suspect]
     Active Substance: ATEZOLIZUMAB
     Indication: Breast cancer metastatic
     Dosage: INTERVAL 21 DAYS
     Route: 042
     Dates: start: 20221224

REACTIONS (5)
  - Off label use [Unknown]
  - Pyrexia [Unknown]
  - Cough [Unknown]
  - Metastases to liver [Unknown]
  - Asthenia [Unknown]
